FAERS Safety Report 6986226-1 (Version None)
Quarter: 2010Q3

REPORT INFORMATION
  Report Type: 
  Country: None (occurrence: None)
  Receive Date: 20100915
  Receipt Date: 20090608
  Transmission Date: 20110219
  Serious: No
  Sender: FDA-Public Use
  Company Number: US-WYE-H09666609

PATIENT
  Age: 62 Year
  Sex: Female

DRUGS (6)
  1. PRISTIQ [Suspect]
     Indication: DEPRESSION
     Dates: start: 20090101
  2. ULTRAM [Concomitant]
  3. NEURONTIN [Concomitant]
  4. BENTYL [Concomitant]
  5. CRESTOR [Concomitant]
  6. PROTONIX [Concomitant]

REACTIONS (6)
  - CHILLS [None]
  - DIZZINESS [None]
  - FEELING ABNORMAL [None]
  - MIDDLE INSOMNIA [None]
  - NAUSEA [None]
  - NIGHT SWEATS [None]
